FAERS Safety Report 6279076-5 (Version None)
Quarter: 2009Q3

REPORT INFORMATION
  Report Type: 
  Country: None (occurrence: None)
  Receive Date: 20090720
  Receipt Date: 20090720
  Transmission Date: 20100115
  Serious: Yes (Other)
  Sender: FDA-Public Use
  Company Number: None

PATIENT
  Sex: Female
  Weight: 66.6788 kg

DRUGS (1)
  1. ZICAM COLD REMEDY [Suspect]
     Indication: NASOPHARYNGITIS
     Dosage: SPRAYED IN EACH NOSTRIL 2-3 X PER DAY
     Dates: start: 20050118, end: 20050207

REACTIONS (7)
  - BURNING SENSATION [None]
  - DYSGEUSIA [None]
  - HYPERAESTHESIA [None]
  - HYPOGEUSIA [None]
  - HYPOSMIA [None]
  - PAROSMIA [None]
  - SUNBURN [None]
